FAERS Safety Report 8948676 (Version 1)
Quarter: 2012Q4

REPORT INFORMATION
  Report Type: Report from Study
  Country: AU (occurrence: AU)
  Receive Date: 20121206
  Receipt Date: 20121206
  Transmission Date: 20130627
  Serious: Yes (Other)
  Sender: FDA-Public Use
  Company Number: PHHY2012AU103724

PATIENT
  Age: 54 Year
  Sex: Male

DRUGS (5)
  1. CLOZARIL [Suspect]
     Indication: SCHIZOPHRENIA
     Dosage: 175 mg
     Route: 048
     Dates: start: 20121025, end: 20121109
  2. OLANZAPINE [Concomitant]
     Dosage: 10 mg, BID
     Route: 048
  3. ZUCLOPENTHIXOL DECANOATE [Concomitant]
     Dosage: 350 mg, UNK
     Route: 030
  4. TEMAZEPAM [Concomitant]
     Dosage: 20 mg, Nocte
     Route: 048
  5. RANITIDINE [Concomitant]
     Dosage: 150 mg, BID
     Route: 048

REACTIONS (5)
  - C-reactive protein increased [Recovered/Resolved]
  - Antinuclear antibody positive [Unknown]
  - Pyrexia [Recovered/Resolved]
  - Platelet count decreased [Recovered/Resolved]
  - Lymphocyte count decreased [Unknown]
